FAERS Safety Report 15782410 (Version 1)
Quarter: 2019Q1

REPORT INFORMATION
  Report Type: Spontaneous
  Country: US (occurrence: US)
  Receive Date: 20190102
  Receipt Date: 20190102
  Transmission Date: 20190417
  Serious: Yes (Other)
  Sender: FDA-Public Use
  Company Number: US-MALLINCKRODT-T201805155

PATIENT
  Sex: Male
  Weight: 100 kg

DRUGS (3)
  1. H.P. ACTHAR [Suspect]
     Active Substance: CORTICOTROPIN
     Indication: SYSTEMIC LUPUS ERYTHEMATOSUS
     Dosage: 80 UNITS (1 ML), EVERY 72 HOURS AS DIRECTED
     Route: 058
     Dates: start: 201810
  2. H.P. ACTHAR [Suspect]
     Active Substance: CORTICOTROPIN
     Indication: CONNECTIVE TISSUE DISORDER
  3. RASUVO [Suspect]
     Active Substance: METHOTREXATE SODIUM
     Indication: PRODUCT USED FOR UNKNOWN INDICATION
     Dosage: UNKNOWN
     Route: 065

REACTIONS (1)
  - Renal impairment [Unknown]

NARRATIVE: CASE EVENT DATE: 2018
